FAERS Safety Report 15899557 (Version 1)
Quarter: 2019Q1

REPORT INFORMATION
  Report Type: Spontaneous
  Country: US (occurrence: US)
  Receive Date: 20190201
  Receipt Date: 20190201
  Transmission Date: 20190417
  Serious: No
  Sender: FDA-Public Use
  Company Number: US-009507513-1901USA011277

PATIENT

DRUGS (2)
  1. ASMANEX [Suspect]
     Active Substance: MOMETASONE FUROATE
     Dosage: 2 PUFFS TWICE DAILY
     Route: 055
     Dates: start: 201810
  2. ASMANEX [Suspect]
     Active Substance: MOMETASONE FUROATE
     Dosage: 2 PUFFS TWICE DAILY
     Route: 055
     Dates: start: 20181203

REACTIONS (3)
  - No adverse event [Unknown]
  - Poor quality device used [Unknown]
  - Product quality issue [Unknown]

NARRATIVE: CASE EVENT DATE: 20190124
